FAERS Safety Report 13551130 (Version 12)
Quarter: 2018Q2

REPORT INFORMATION
  Report Type: Spontaneous
  Country: IT (occurrence: IT)
  Receive Date: 20170516
  Receipt Date: 20180417
  Transmission Date: 20180711
  Serious: Yes (Other)
  Sender: FDA-Public Use
  Company Number: IT-PFIZER INC-2017214590

PATIENT
  Age: 18 Year
  Sex: Female

DRUGS (7)
  1. CELECOXIB. [Suspect]
     Active Substance: CELECOXIB
     Indication: ARTHRITIS
     Dosage: 2 DF, SINGLE (TOTAL)
     Route: 048
     Dates: start: 20170501, end: 20170501
  2. DUFASTON [Suspect]
     Active Substance: DYDROGESTERONE
     Indication: INTENTIONAL SELF-INJURY
     Dosage: 2 DF, SINGLE (TOTAL)
     Route: 048
     Dates: start: 20170501, end: 20170501
  3. RAMIPRIL. [Suspect]
     Active Substance: RAMIPRIL
     Indication: INTENTIONAL SELF-INJURY
     Dosage: 5 MG, SINGLE (TOTAL)
     Route: 048
     Dates: start: 20170501, end: 20170501
  4. FLUCONAZOLE. [Suspect]
     Active Substance: FLUCONAZOLE
     Indication: INTENTIONAL SELF-INJURY
     Dosage: 1 DF, SINGLE (TOTAL)
     Route: 048
     Dates: start: 20170501, end: 20170501
  5. KEPPRA [Suspect]
     Active Substance: LEVETIRACETAM
     Indication: INTENTIONAL SELF-INJURY
     Dosage: 2 DF, SINGLE (TOTAL)
     Route: 048
     Dates: start: 20170501, end: 20170501
  6. CELECOXIB. [Suspect]
     Active Substance: CELECOXIB
     Indication: INTENTIONAL SELF-INJURY
  7. DELTACORTENE [Suspect]
     Active Substance: PREDNISONE
     Indication: INTENTIONAL SELF-INJURY
     Dosage: 3 DF, SINGLE (TOTAL)
     Route: 048
     Dates: start: 20170501, end: 20170501

REACTIONS (5)
  - Headache [Unknown]
  - Drug use disorder [Unknown]
  - Intentional self-injury [Unknown]
  - Drug abuse [Unknown]
  - Toxicity to various agents [Unknown]

NARRATIVE: CASE EVENT DATE: 20170501
